FAERS Safety Report 8041740-5 (Version None)
Quarter: 2012Q1

REPORT INFORMATION
  Report Type: 
  Country: None (occurrence: None)
  Receive Date: 20120112
  Receipt Date: 20120110
  Transmission Date: 20120608
  Serious: Yes (Death)
  Sender: FDA-Public Use
  Company Number: US-SHIRE-ALL1-2012-00114

PATIENT
  Sex: Female
  Weight: 49.887 kg

DRUGS (1)
  1. LIALDA [Suspect]
     Indication: GASTROINTESTINAL DISORDER
     Dosage: 1.2 G, 1X/DAY:QD
     Route: 048

REACTIONS (3)
  - CEREBROVASCULAR ACCIDENT [None]
  - COMA [None]
  - OFF LABEL USE [None]
